FAERS Safety Report 10426135 (Version 3)
Quarter: 2014Q4

REPORT INFORMATION
  Report Type: Spontaneous
  Country: IT (occurrence: IT)
  Receive Date: 20140903
  Receipt Date: 20141106
  Transmission Date: 20150528
  Serious: Yes (Life-Threatening)
  Sender: FDA-Public Use
  Company Number: IT-ROCHE-1456945

PATIENT
  Age: 72 Year
  Sex: Male
  Weight: 90 kg

DRUGS (2)
  1. LEVACT (ITALY) [Concomitant]
     Active Substance: BENDAMUSTINE HYDROCHLORIDE
     Indication: CHRONIC LYMPHOCYTIC LEUKAEMIA
     Route: 042
     Dates: start: 20140312, end: 20140611
  2. MABTHERA [Suspect]
     Active Substance: RITUXIMAB
     Indication: CHRONIC LYMPHOCYTIC LEUKAEMIA
     Route: 042
     Dates: start: 20140414, end: 20140513

REACTIONS (6)
  - Hypertension [Unknown]
  - Eye movement disorder [Unknown]
  - Loss of consciousness [Unknown]
  - Off label use [Unknown]
  - Bladder sphincter atony [Recovered/Resolved]
  - Anal sphincter atony [Unknown]

NARRATIVE: CASE EVENT DATE: 20140513
